FAERS Safety Report 24391702 (Version 1)
Quarter: 2024Q4

REPORT INFORMATION
  Report Type: Spontaneous
  Country: US (occurrence: None)
  Receive Date: 20241002
  Receipt Date: 20241002
  Transmission Date: 20250115
  Serious: Yes (Other)
  Sender: Public
  Company Number: None

PATIENT
  Age: 74 Year
  Sex: Female
  Weight: 54 kg

DRUGS (8)
  1. FOSAMAX [Suspect]
     Active Substance: ALENDRONATE SODIUM
     Indication: Osteoporosis
     Dates: start: 20240413, end: 20240427
  2. METOPROLOL [Concomitant]
     Active Substance: METOPROLOL
  3. Losarton [Concomitant]
  4. ATORVASTATIN [Concomitant]
     Active Substance: ATORVASTATIN
  5. VITAMINS [Concomitant]
     Active Substance: VITAMINS
  6. CALCIUM [Concomitant]
     Active Substance: CALCIUM
  7. VITAMIN D [Concomitant]
     Active Substance: VITAMIN D NOS
  8. FISH OIL [Concomitant]
     Active Substance: FISH OIL

REACTIONS (10)
  - Abdominal pain upper [None]
  - Neck pain [None]
  - Arthralgia [None]
  - Arthralgia [None]
  - Swelling [None]
  - Jaw disorder [None]
  - Fatigue [None]
  - Discomfort [None]
  - Illness [None]
  - Ligament sprain [None]

NARRATIVE: CASE EVENT DATE: 20240428
